FAERS Safety Report 20054984 (Version 2)
Quarter: 2022Q1

REPORT INFORMATION
  Report Type: Spontaneous
  Country: US (occurrence: US)
  Receive Date: 20211110
  Receipt Date: 20220112
  Transmission Date: 20220423
  Serious: No
  Sender: FDA-Public Use
  Company Number: US-BIOMARINAP-US-2021-139437

PATIENT
  Age: 44 Year
  Sex: Female

DRUGS (1)
  1. PALYNZIQ [Suspect]
     Active Substance: PEGVALIASE-PQPZ
     Indication: Phenylketonuria
     Dosage: 10 MILLIGRAM
     Route: 058

REACTIONS (5)
  - Gastrointestinal ulcer [Unknown]
  - Abdominal pain [Unknown]
  - Inflammation [Unknown]
  - Nausea [Unknown]
  - Vomiting [Unknown]
